FAERS Safety Report 12225918 (Version 1)
Quarter: 2016Q1

REPORT INFORMATION
  Report Type: Spontaneous
  Country: CN (occurrence: CN)
  Receive Date: 20160331
  Receipt Date: 20160331
  Transmission Date: 20160526
  Serious: Yes (Other)
  Sender: FDA-Public Use
  Company Number: CN-BAYER-2016-055230

PATIENT
  Sex: Female

DRUGS (2)
  1. GLUCOBAY [Suspect]
     Active Substance: ACARBOSE
     Dosage: UNK
  2. MELBIN [METFORMIN HYDROCHLORIDE] [Concomitant]
     Dosage: UNK

REACTIONS (2)
  - Drug ineffective [None]
  - Diabetes mellitus inadequate control [None]
